FAERS Safety Report 6458850-6 (Version None)
Quarter: 2009Q4

REPORT INFORMATION
  Report Type: 
  Country: None (occurrence: None)
  Receive Date: 20091125
  Receipt Date: 20091125
  Transmission Date: 20100525
  Serious: No
  Sender: FDA-Public Use
  Company Number: None

PATIENT
  Sex: Male
  Weight: 99.1109 kg

DRUGS (3)
  1. CHANTIX [Suspect]
     Indication: NICOTINE DEPENDENCE
     Dosage: 1MG BID PO
     Route: 048
     Dates: start: 20091105, end: 20091123
  2. RISPERDAL [Concomitant]
  3. EFFEXOR [Concomitant]

REACTIONS (3)
  - ANXIETY [None]
  - SENSORY DISTURBANCE [None]
  - SOMNOLENCE [None]
